FAERS Safety Report 21395257 (Version 2)
Quarter: 2022Q4

REPORT INFORMATION
  Report Type: Other
  Country: CA (occurrence: None)
  Receive Date: 20220930
  Receipt Date: 20221007
  Transmission Date: 20230113
  Serious: Yes (Other)
  Sender: FDA-Public Use
  Company Number: CA-ROCHE-2938671

PATIENT
  Age: 46 Year
  Sex: Female

DRUGS (3)
  1. OCREVUS [Suspect]
     Active Substance: OCRELIZUMAB
     Indication: Relapsing-remitting multiple sclerosis
     Dosage: MORE DOSAGE INFORMATION IS 300 MG AT DAY 0 AND 14, THEN 600 MG EVERY 6 MONTH
     Route: 042
     Dates: start: 20211006
  2. MAGNESIUM [Concomitant]
     Active Substance: MAGNESIUM
  3. CHICKENPOX VACCINE [Concomitant]

REACTIONS (25)
  - Pain of skin [Not Recovered/Not Resolved]
  - Skin burning sensation [Not Recovered/Not Resolved]
  - Paranoia [Not Recovered/Not Resolved]
  - Skin disorder [Not Recovered/Not Resolved]
  - Dry skin [Not Recovered/Not Resolved]
  - Pruritus [Not Recovered/Not Resolved]
  - Headache [Not Recovered/Not Resolved]
  - Fatigue [Not Recovered/Not Resolved]
  - Gastrointestinal injury [Recovering/Resolving]
  - Gait disturbance [Not Recovered/Not Resolved]
  - Headache [Unknown]
  - Rash [Unknown]
  - Scab [Unknown]
  - Muscular weakness [Not Recovered/Not Resolved]
  - Fall [Unknown]
  - Stress [Unknown]
  - Ligament sprain [Not Recovered/Not Resolved]
  - Ligament sprain [Not Recovered/Not Resolved]
  - Skin laceration [Recovering/Resolving]
  - Influenza [Unknown]
  - Throat irritation [Unknown]
  - Peroneal nerve palsy [Not Recovered/Not Resolved]
  - Thyroid disorder [Not Recovered/Not Resolved]
  - Hallucinations, mixed [Unknown]
  - Fall [Unknown]

NARRATIVE: CASE EVENT DATE: 20220910
